FAERS Safety Report 5108040-4 (Version None)
Quarter: 2006Q3

REPORT INFORMATION
  Report Type: 
  Country: None (occurrence: None)
  Receive Date: 20060919
  Receipt Date: 20060912
  Transmission Date: 20061208
  Serious: Yes (Hospitalization)
  Sender: FDA-Public Use
  Company Number: 2006CG01482

PATIENT
  Age: 56 Year
  Sex: Female

DRUGS (3)
  1. ZOMIG [Suspect]
     Indication: HEADACHE
     Dosage: 16 TABLETS (40 MG) TAKEN PER MONTH
     Route: 048
     Dates: end: 20060524
  2. ADVIL [Suspect]
     Indication: HEADACHE
     Route: 048
     Dates: end: 20060524
  3. PROPOFOL [Suspect]
     Indication: HEADACHE
     Route: 048
     Dates: end: 20060524

REACTIONS (3)
  - DRUG ABUSER [None]
  - DRUG DEPENDENCE [None]
  - HEADACHE [None]
